FAERS Safety Report 8016001-0 (Version None)
Quarter: 2011Q4

REPORT INFORMATION
  Report Type: 
  Country: None (occurrence: None)
  Receive Date: 20111230
  Receipt Date: 20111230
  Transmission Date: 20120403
  Serious: Yes (Death)
  Sender: FDA-Public Use
  Company Number: None

PATIENT
  Age: 30 Year
  Sex: Female
  Weight: 97.975 kg

DRUGS (6)
  1. MULTIHANCE [Suspect]
     Dosage: 8ML
     Route: 042
     Dates: start: 20111228, end: 20111228
  2. PRILOSEC [Concomitant]
     Route: 048
  3. TOPAMAX [Concomitant]
     Route: 048
  4. RECLIPSEN [Concomitant]
     Route: 048
  5. IBUPROFEN [Concomitant]
     Route: 048
  6. VITAMIN D [Concomitant]
     Route: 048

REACTIONS (4)
  - UNRESPONSIVE TO STIMULI [None]
  - FOAMING AT MOUTH [None]
  - PULSELESS ELECTRICAL ACTIVITY [None]
  - CARDIO-RESPIRATORY ARREST [None]
